FAERS Safety Report 6964549-X (Version None)
Quarter: 2010Q3

REPORT INFORMATION
  Report Type: 
  Country: None (occurrence: None)
  Receive Date: 20100903
  Receipt Date: 20100819
  Transmission Date: 20110219
  Serious: Yes (Hospitalization)
  Sender: FDA-Public Use
  Company Number: US-BAYER-201028644NA

PATIENT
  Age: 34 Year
  Sex: Female
  Weight: 61 kg

DRUGS (4)
  1. YAZ [Suspect]
     Indication: PRODUCT USED FOR UNKNOWN INDICATION
     Route: 048
     Dates: start: 20080801, end: 20090101
  2. YASMIN [Suspect]
     Indication: PRODUCT USED FOR UNKNOWN INDICATION
     Route: 048
     Dates: start: 20060101, end: 20080601
  3. PREVACID [Concomitant]
     Dates: start: 20070101, end: 20090101
  4. IMITREX [Concomitant]
     Dates: start: 20080101

REACTIONS (2)
  - ABDOMINAL PAIN UPPER [None]
  - GALLBLADDER INJURY [None]
